FAERS Safety Report 16015715 (Version 1)
Quarter: 2019Q1

REPORT INFORMATION
  Report Type: Spontaneous
  Country: US (occurrence: US)
  Receive Date: 20190228
  Receipt Date: 20190228
  Transmission Date: 20190418
  Serious: Yes (Other)
  Sender: FDA-Public Use
  Company Number: US-LUPIN HEALTHCARE (UK) LIMITED-2019-01061

PATIENT
  Age: 64 Year
  Sex: Female
  Weight: 60.32 kg

DRUGS (2)
  1. LISINOPRIL TABLETS USP, 10MG [Suspect]
     Active Substance: LISINOPRIL
     Dosage: 10 MILLIGRAM, QD
     Route: 048
     Dates: start: 20190212, end: 20190212
  2. LISINOPRIL TABLETS USP, 10MG [Suspect]
     Active Substance: LISINOPRIL
     Indication: HYPERTENSION
     Dosage: 10 MILLIGRAM, QD, OLD FORMULATION
     Route: 048

REACTIONS (9)
  - Product dose omission [Unknown]
  - Head discomfort [Recovered/Resolved]
  - Palpitations [Recovered/Resolved]
  - Dyspnoea [Recovered/Resolved]
  - Somnolence [Recovered/Resolved]
  - Asphyxia [Recovered/Resolved]
  - Erythema [Recovered/Resolved]
  - Feeling abnormal [Recovered/Resolved]
  - Rash [Unknown]

NARRATIVE: CASE EVENT DATE: 20190212
